FAERS Safety Report 11925757 (Version 1)
Quarter: 2016Q1

REPORT INFORMATION
  Report Type: Spontaneous
  Country: US (occurrence: US)
  Receive Date: 20160118
  Receipt Date: 20160118
  Transmission Date: 20160526
  Serious: No
  Sender: FDA-Public Use
  Company Number: US-ASTRAZENECA-2016SE02479

PATIENT
  Sex: Female

DRUGS (24)
  1. LYRICA [Suspect]
     Active Substance: PREGABALIN
     Indication: POLYNEUROPATHY IDIOPATHIC PROGRESSIVE
     Route: 048
  2. LORAZEPAM. [Concomitant]
     Active Substance: LORAZEPAM
  3. AMITRIPTYLINE [Concomitant]
     Active Substance: AMITRIPTYLINE
  4. LOSARTAN. [Concomitant]
     Active Substance: LOSARTAN
  5. SPIRONOLACTONE. [Concomitant]
     Active Substance: SPIRONOLACTONE
  6. FLONASE [Concomitant]
     Active Substance: FLUTICASONE PROPIONATE
     Route: 045
  7. CENTRUM SILVER [Concomitant]
     Active Substance: MINERALS\VITAMINS
     Indication: SUPPLEMENTATION THERAPY
     Dosage: DAILY
  8. PROBIOTIC [Concomitant]
     Active Substance: PROBIOTICS NOS
     Dosage: DAILY
  9. SEROQUEL [Suspect]
     Active Substance: QUETIAPINE FUMARATE
     Route: 048
  10. SPIRIVA [Suspect]
     Active Substance: TIOTROPIUM BROMIDE MONOHYDRATE
     Route: 065
  11. DILAUDID [Concomitant]
     Active Substance: HYDROMORPHONE HYDROCHLORIDE
     Dosage: 4 MG EVERY 4 - 6 HRS AS NEEDED
  12. ALBUTEROL. [Concomitant]
     Active Substance: ALBUTEROL
  13. CALCIUM [Concomitant]
     Active Substance: CALCIUM
     Indication: BONE DISORDER
  14. VITAMIN D [Concomitant]
     Active Substance: CHOLECALCIFEROL
  15. VOLTAREN [Concomitant]
     Active Substance: DICLOFENAC SODIUM
  16. TOPIRAMATE. [Concomitant]
     Active Substance: TOPIRAMATE
  17. POTASSIUM [Concomitant]
     Active Substance: POTASSIUM
  18. VITAMIN C [Concomitant]
     Active Substance: ASCORBIC ACID
     Dosage: 500 MG USP TWO TIMES A DAY
  19. TORASEMIDE [Concomitant]
     Active Substance: TORSEMIDE
     Indication: DIURETIC THERAPY
  20. PREDNISONE. [Concomitant]
     Active Substance: PREDNISONE
  21. OMEPRAZOLE. [Concomitant]
     Active Substance: OMEPRAZOLE
  22. ASPIRIN. [Concomitant]
     Active Substance: ASPIRIN
  23. PRAMIPEXOLE. [Concomitant]
     Active Substance: PRAMIPEXOLE
     Indication: RESTLESS LEGS SYNDROME
     Dosage: 1 MG AT DINNER 1 AT BED
  24. DULOXETINE. [Concomitant]
     Active Substance: DULOXETINE

REACTIONS (1)
  - Dermatitis allergic [Unknown]
